FAERS Safety Report 4402068-5 (Version None)
Quarter: 2004Q3

REPORT INFORMATION
  Report Type: 
  Country: None (occurrence: None)
  Receive Date: 20040714
  Receipt Date: 20040624
  Transmission Date: 20050211
  Serious: Yes (Hospitalization, Other)
  Sender: FDA-Public Use
  Company Number: USA040671048

PATIENT
  Age: 46 Year
  Sex: Female

DRUGS (3)
  1. ZYPREXA [Suspect]
     Indication: SCHIZOPHRENIA, PARANOID TYPE
     Dosage: 10 MG DAY
     Dates: start: 20010101
  2. DAILY VITAMINS [Concomitant]
  3. LASIX [Concomitant]

REACTIONS (1)
  - THROMBOSIS [None]
